FAERS Safety Report 22186556 (Version 1)
Quarter: 2023Q2

REPORT INFORMATION
  Report Type: Spontaneous
  Country: US (occurrence: None)
  Receive Date: 20230407
  Receipt Date: 20230407
  Transmission Date: 20230721
  Serious: Yes (unspecified)
  Sender: FDA-Public Use
  Company Number: None

PATIENT
  Age: 50 Year
  Sex: Female
  Weight: 121.5 kg

DRUGS (3)
  1. ICY HOT MEDICATED NO MESS APPLICATOR [Suspect]
     Active Substance: MENTHOL
     Indication: Musculoskeletal discomfort
     Dosage: OTHER FREQUENCY : USED ONE TIME ONLY;?
     Route: 061
     Dates: start: 20230322, end: 20230323
  2. Lisa Ryan potassium [Concomitant]
  3. TIZANIDINE [Concomitant]
     Active Substance: TIZANIDINE

REACTIONS (5)
  - Burns second degree [None]
  - Burns third degree [None]
  - Inflammation [None]
  - Impaired healing [None]
  - Scar [None]

NARRATIVE: CASE EVENT DATE: 20230322
